FAERS Safety Report 10945649 (Version 1)
Quarter: 2015Q1

REPORT INFORMATION
  Report Type: Spontaneous
  Country: US (occurrence: None)
  Receive Date: 20150319
  Receipt Date: 20150319
  Transmission Date: 20150721
  Serious: Yes (Hospitalization)
  Sender: FDA-Public Use
  Company Number: 2786995

PATIENT
  Age: 53 Year
  Sex: Female

DRUGS (8)
  1. TRIMETHOPRIM. [Suspect]
     Active Substance: TRIMETHOPRIM
     Indication: PRODUCT USED FOR UNKNOWN INDICATION
     Dosage: 200 MG MILLIGRAM(S), 2 DAY
     Route: 048
     Dates: start: 20120808, end: 20120811
  2. TEICOPLANIN [Suspect]
     Active Substance: TEICOPLANIN
     Indication: PRODUCT USED FOR UNKNOWN INDICATION
     Dosage: 800 MG MILLIGRAM(S), 1 DAY
     Route: 042
     Dates: start: 20120822, end: 20120824
  3. PIVMECILLINAM HYDROCHLORIDE [Suspect]
     Active Substance: AMDINOCILLIN PIVOXIL HYDROCHLORIDE
     Indication: PRODUCT USED FOR UNKNOWN INDICATION
     Dosage: 200 MG MILLIGRAM(S), 3 DAY
     Route: 048
     Dates: start: 20121019, end: 20121022
  4. GENTAMICIN SULFATE. [Suspect]
     Active Substance: GENTAMICIN SULFATE
     Indication: PRODUCT USED FOR UNKNOWN INDICATION
     Dosage: 320 MG MILLIGRAM(S), TOTAL
     Route: 042
     Dates: start: 20120809, end: 20120809
  5. MEROPENEM. [Suspect]
     Active Substance: MEROPENEM
     Indication: PRODUCT USED FOR UNKNOWN INDICATION
     Dosage: 1 G GRAM(S) 3 DAY
     Route: 042
     Dates: start: 20120826, end: 20120831
  6. PIPERACILLIN AND TAZOBACTAM [Suspect]
     Active Substance: PIPERACILLIN SODIUM\TAZOBACTAM SODIUM
     Indication: PRODUCT USED FOR UNKNOWN INDICATION
     Dosage: 4.5 G GRAM(S), 3 DAY
     Route: 042
     Dates: start: 20120907, end: 20120912
  7. OMEPRAZOLE. [Suspect]
     Active Substance: OMEPRAZOLE
     Indication: PRODUCT USED FOR UNKNOWN INDICATION
     Dosage: 20 MG MILIGRAM(S), 1 DAY
  8. METRONIDAZOLE. [Concomitant]
     Active Substance: METRONIDAZOLE

REACTIONS (1)
  - Clostridium difficile infection [None]

NARRATIVE: CASE EVENT DATE: 20121128
